FAERS Safety Report 17554851 (Version 4)
Quarter: 2020Q4

REPORT INFORMATION
  Report Type: Spontaneous
  Country: US (occurrence: US)
  Receive Date: 20200318
  Receipt Date: 20201117
  Transmission Date: 20210113
  Serious: No
  Sender: FDA-Public Use
  Company Number: US-PFIZER INC-2019177401

PATIENT
  Age: 66 Year
  Sex: Male
  Weight: 85 kg

DRUGS (6)
  1. CELEBREX [Suspect]
     Active Substance: CELECOXIB
     Dosage: 200 MG, 1X/DAY
     Route: 048
  2. HYDROCODONE [Concomitant]
     Active Substance: HYDROCODONE
     Indication: PAIN
     Dosage: UNK, 3X/DAY
  3. CELEBREX [Suspect]
     Active Substance: CELECOXIB
     Indication: DRUG LEVEL THERAPEUTIC
     Dosage: 200 MG, UNK
  4. MORPHINE [Concomitant]
     Active Substance: MORPHINE
     Indication: PAIN
     Dosage: UNK, 4X/DAY
  5. CELEBREX [Suspect]
     Active Substance: CELECOXIB
     Indication: SPINAL FUSION SURGERY
     Dosage: 90 MG, UNK
  6. TIZANIDINE. [Concomitant]
     Active Substance: TIZANIDINE
     Indication: MUSCLE DISORDER
     Dosage: 4 MG, 4X/DAY

REACTIONS (3)
  - Off label use [Unknown]
  - Aphonia [Unknown]
  - Product prescribing error [Unknown]
